FAERS Safety Report 11109502 (Version 1)
Quarter: 2015Q2

REPORT INFORMATION
  Report Type: Spontaneous
  Country: US (occurrence: None)
  Receive Date: 20150511
  Receipt Date: 20150511
  Transmission Date: 20150821
  Serious: Yes (Other)
  Sender: FDA-Public Use
  Company Number: None

PATIENT
  Age: 43 Year
  Sex: Female

DRUGS (1)
  1. SIMPONI [Suspect]
     Active Substance: GOLIMUMAB
     Indication: RHEUMATOID ARTHRITIS
     Dosage: 2 DOSES, 4 WEEKS APART?INDUCTION DOSING; WEEKS 0 AND 4
     Route: 042

REACTIONS (3)
  - Dry skin [None]
  - Lip dry [None]
  - Rash [None]

NARRATIVE: CASE EVENT DATE: 20150428
